FAERS Safety Report 5285594-9 (Version None)
Quarter: 2007Q1

REPORT INFORMATION
  Report Type: 
  Country: None (occurrence: None)
  Receive Date: 20061226
  Receipt Date: 20060825
  Transmission Date: 20070707
  Serious: No
  Sender: FDA-Public Use
  Company Number: PHEH2006US10971

PATIENT
  Age: 74 Year
  Sex: Female

DRUGS (2)
  1. ENABLEX [Suspect]
     Indication: URINARY INCONTINENCE
     Dosage: 7.5 MG, QD, UNK
     Dates: start: 20060824
  2. LOTREL [Concomitant]

REACTIONS (1)
  - RASH [None]
